FAERS Safety Report 17566252 (Version 4)
Quarter: 2020Q2

REPORT INFORMATION
  Report Type: Spontaneous
  Country: US (occurrence: US)
  Receive Date: 20200320
  Receipt Date: 20200626
  Transmission Date: 20200713
  Serious: Yes (Other)
  Sender: FDA-Public Use
  Company Number: US-PFIZER INC-2020039914

PATIENT
  Age: 79 Year
  Sex: Male

DRUGS (3)
  1. LYRICA [Suspect]
     Active Substance: PREGABALIN
     Indication: POLYNEUROPATHY
     Dosage: 225 MG, DAILY (75 MG 1 IN AM 2 IN BED TIME )
     Route: 048
  2. LYRICA [Suspect]
     Active Substance: PREGABALIN
     Dosage: 675 MG, DAILY (75 MG, 1 CAP IN MORNING AND 2 CAPS AT BEDTIME AND 150 MG 1 CAPSULE 3 TIMES A DAY)
     Route: 048
  3. LYRICA [Suspect]
     Active Substance: PREGABALIN
     Indication: PAIN
     Dosage: 150 MG, ONCE DAILY

REACTIONS (3)
  - Deafness [Unknown]
  - Dysgraphia [Unknown]
  - Prescribed overdose [Unknown]
